FAERS Safety Report 6199704-2 (Version None)
Quarter: 2009Q2

REPORT INFORMATION
  Report Type: 
  Country: None (occurrence: None)
  Receive Date: 20090522
  Receipt Date: 20090511
  Transmission Date: 20091009
  Serious: Yes (Death)
  Sender: FDA-Public Use
  Company Number: FR-PFIZER INC-2009211398

PATIENT
  Age: 45 Year

DRUGS (1)
  1. SUTENT [Suspect]
     Indication: THYROID CANCER
     Dosage: 37.5 MG, CYCLIC
     Dates: start: 20090408, end: 20090418

REACTIONS (1)
  - HAEMORRHAGE [None]
